FAERS Safety Report 7746148-5 (Version None)
Quarter: 2011Q3

REPORT INFORMATION
  Report Type: 
  Country: None (occurrence: None)
  Receive Date: 20110913
  Receipt Date: 20110831
  Transmission Date: 20111222
  Serious: Yes (Hospitalization, Other)
  Sender: FDA-Public Use
  Company Number: US-ELI_LILLY_AND_COMPANY-US201009007461

PATIENT
  Sex: Female

DRUGS (13)
  1. FORTEO [Suspect]
     Indication: OSTEOPOROSIS
     Dosage: 20 UG, DAILY (1/D)
     Route: 058
  2. BENAZEPRIL HYDROCHLORIDE [Concomitant]
     Indication: BLOOD PRESSURE
  3. TRAMADOL HCL [Concomitant]
  4. PULMICORT [Concomitant]
     Dosage: UNK
     Route: 065
  5. ANALGESICS [Concomitant]
     Route: 065
  6. BUSPIRONE HCL [Concomitant]
     Indication: ANXIETY
  7. OMEPRAZOLE [Concomitant]
     Indication: ABDOMINAL DISCOMFORT
  8. FORTEO [Suspect]
     Dosage: 20 UG, QD
     Route: 058
  9. CYMBALTA [Suspect]
     Dosage: UNK
  10. LORAZEPAM [Concomitant]
     Indication: NERVOUS SYSTEM DISORDER
  11. FORTEO [Suspect]
     Dosage: 20 UG, QD
     Route: 058
     Dates: start: 20110311
  12. ASPIRIN [Concomitant]
     Route: 065
  13. ALBUTEROL SULFATE AUTOHALER [Concomitant]

REACTIONS (29)
  - CEREBROVASCULAR ACCIDENT [None]
  - ANGIOGRAM [None]
  - INFECTION [None]
  - FALL [None]
  - HEART RATE IRREGULAR [None]
  - STRESS [None]
  - ANXIETY [None]
  - STAPHYLOCOCCAL INFECTION [None]
  - VISUAL ACUITY REDUCED [None]
  - BONE PAIN [None]
  - DYSPNOEA [None]
  - CARDIAC DISORDER [None]
  - JOINT SWELLING [None]
  - SPINAL FRACTURE [None]
  - DEPRESSION [None]
  - HOSPITALISATION [None]
  - BRONCHOPNEUMONIA [None]
  - PNEUMONIA [None]
  - DECREASED APPETITE [None]
  - GENERAL PHYSICAL HEALTH DETERIORATION [None]
  - TREMOR [None]
  - BALANCE DISORDER [None]
  - EMPHYSEMA [None]
  - MALAISE [None]
  - ASTHENIA [None]
  - WEIGHT DECREASED [None]
  - MEDICATION ERROR [None]
  - LIMB INJURY [None]
  - CONTUSION [None]
